FAERS Safety Report 18468710 (Version 1)
Quarter: 2020Q4

REPORT INFORMATION
  Report Type: Spontaneous
  Country: US (occurrence: US)
  Receive Date: 20201105
  Receipt Date: 20201105
  Transmission Date: 20210114
  Serious: Yes (Other)
  Sender: FDA-Public Use
  Company Number: US-OTSUKA-2020_026909

PATIENT
  Age: 66 Year
  Sex: Male

DRUGS (1)
  1. SAMSCA [Suspect]
     Active Substance: TOLVAPTAN
     Indication: BLOOD SODIUM DECREASED
     Dosage: UNK
     Route: 065
     Dates: start: 202010

REACTIONS (3)
  - Delirium [Not Recovered/Not Resolved]
  - Paranoia [Not Recovered/Not Resolved]
  - Osmotic demyelination syndrome [Not Recovered/Not Resolved]

NARRATIVE: CASE EVENT DATE: 202010
